FAERS Safety Report 9421052 (Version 1)
Quarter: 2013Q3

REPORT INFORMATION
  Report Type: Spontaneous
  Country: GB (occurrence: GB)
  Receive Date: 20130725
  Receipt Date: 20130725
  Transmission Date: 20140515
  Serious: Yes (Hospitalization, Other)
  Sender: FDA-Public Use
  Company Number: GB-ASTRAZENECA-2013SE53137

PATIENT
  Age: 57 Year
  Sex: Male

DRUGS (6)
  1. LISINOPRIL [Suspect]
     Indication: HYPERTENSION
     Route: 048
  2. TELAPREVIR [Interacting]
     Route: 048
     Dates: start: 201109
  3. PEGINTERFERON ALFA-2B [Concomitant]
     Route: 048
     Dates: start: 201109
  4. RIBAVIRIN [Concomitant]
     Route: 048
     Dates: start: 201109
  5. RIBAVIRIN [Concomitant]
     Route: 048
  6. RIBAVIRIN [Concomitant]
     Route: 048

REACTIONS (6)
  - Drug interaction [Unknown]
  - Condition aggravated [Unknown]
  - Dehydration [Unknown]
  - Renal impairment [Unknown]
  - Anaemia [Unknown]
  - Adverse event [Unknown]
